FAERS Safety Report 14793945 (Version 2)
Quarter: 2018Q2

REPORT INFORMATION
  Report Type: Spontaneous
  Country: IL (occurrence: IL)
  Receive Date: 20180423
  Receipt Date: 20180425
  Transmission Date: 20180711
  Serious: Yes (Other)
  Sender: FDA-Public Use
  Company Number: IL-SA-2018SA106164

PATIENT
  Age: 9 Year
  Sex: Male

DRUGS (1)
  1. STERONASE AQ [Suspect]
     Active Substance: TRIAMCINOLONE ACETONIDE
     Indication: RHINORRHOEA
     Dosage: STARTED OVER A YEAR AGO
     Route: 065

REACTIONS (1)
  - Epistaxis [Recovered/Resolved]
